FAERS Safety Report 21479340 (Version 1)
Quarter: 2022Q4

REPORT INFORMATION
  Report Type: Spontaneous
  Country: US (occurrence: None)
  Receive Date: 20221018
  Receipt Date: 20221018
  Transmission Date: 20230112
  Serious: Yes (Hospitalization)
  Sender: FDA-Public Use
  Company Number: None

PATIENT
  Age: 83 Year
  Sex: Female

DRUGS (1)
  1. EVEROLIMUS [Suspect]
     Active Substance: EVEROLIMUS
     Dosage: FREQUENCY : DAILY;?
     Route: 048

REACTIONS (7)
  - Urinary tract infection [None]
  - Fatigue [None]
  - Confusional state [None]
  - Peripheral swelling [None]
  - Peripheral swelling [None]
  - Thrombosis [None]
  - Adverse drug reaction [None]

NARRATIVE: CASE EVENT DATE: 20221018
